FAERS Safety Report 10008847 (Version 1)
Quarter: 2014Q1

REPORT INFORMATION
  Report Type: Spontaneous
  Country: US (occurrence: US)
  Receive Date: 20140312
  Receipt Date: 20140312
  Transmission Date: 20141002
  Serious: Yes (Hospitalization)
  Sender: FDA-Public Use
  Company Number: US-INCYTE CORPORATION-2012IN000758

PATIENT
  Age: 59 Year
  Sex: Male

DRUGS (9)
  1. JAKAFI [Suspect]
     Indication: MYELOFIBROSIS
     Dosage: 20 MG, BID
     Route: 048
     Dates: start: 20120319, end: 2012
  2. OXYCONTIN [Concomitant]
  3. METOPROLOL [Concomitant]
  4. LISINOPRIL [Concomitant]
  5. SIMVASTATIN [Concomitant]
  6. METFORMIN [Concomitant]
  7. GLIPIZIDE [Concomitant]
  8. OMEPRAZOLE [Concomitant]
  9. ADDERALL [Concomitant]

REACTIONS (2)
  - Anaemia [Unknown]
  - Blood count abnormal [Unknown]
